FAERS Safety Report 9637901 (Version 2)
Quarter: 2013Q4

REPORT INFORMATION
  Report Type: Spontaneous
  Country: US (occurrence: US)
  Receive Date: 20131022
  Receipt Date: 20131022
  Transmission Date: 20140711
  Serious: Yes (Other)
  Sender: FDA-Public Use
  Company Number: US-ELI_LILLY_AND_COMPANY-US201308004220

PATIENT
  Sex: Female
  Weight: 93.42 kg

DRUGS (5)
  1. CYMBALTA [Suspect]
     Dosage: 60 MG, QD
     Dates: end: 20130721
  2. CYMBALTA [Suspect]
     Dosage: UNK
     Dates: start: 201309
  3. SYNTHROID [Concomitant]
  4. VITAMIN D                          /00107901/ [Concomitant]
  5. PRENATAL VITAMINS                  /01549301/ [Concomitant]

REACTIONS (5)
  - Blighted ovum [Recovered/Resolved]
  - Foetal exposure during pregnancy [Not Recovered/Not Resolved]
  - Intentional drug misuse [Unknown]
  - Drug withdrawal syndrome [Recovered/Resolved]
  - Nausea [Recovered/Resolved]
